FAERS Safety Report 13508429 (Version 2)
Quarter: 2017Q2

REPORT INFORMATION
  Report Type: Spontaneous
  Country: DE (occurrence: DE)
  Receive Date: 20170503
  Receipt Date: 20170529
  Transmission Date: 20170830
  Serious: Yes (Hospitalization, Other)
  Sender: FDA-Public Use
  Company Number: DE-JNJFOC-20170425351

PATIENT
  Age: 22 Year
  Sex: Male
  Weight: 78 kg

DRUGS (3)
  1. REGAINE MAENNER LOESUNG [Suspect]
     Active Substance: MINOXIDIL
     Route: 065
  2. REGAINE MAENNER LOESUNG [Suspect]
     Active Substance: MINOXIDIL
     Indication: ANDROGENETIC ALOPECIA
     Route: 065
     Dates: start: 20170410, end: 20170420
  3. LEVETIRACETAM. [Concomitant]
     Active Substance: LEVETIRACETAM
     Indication: PRODUCT USED FOR UNKNOWN INDICATION
     Dosage: 250 MG TWICE
     Route: 065
     Dates: start: 201604

REACTIONS (2)
  - Upper limb fracture [Recovering/Resolving]
  - Epilepsy [Recovering/Resolving]

NARRATIVE: CASE EVENT DATE: 20170420
